FAERS Safety Report 4985197-7 (Version None)
Quarter: 2006Q2

REPORT INFORMATION
  Report Type: 
  Country: None (occurrence: None)
  Receive Date: 20060427
  Receipt Date: 20050117
  Transmission Date: 20061013
  Serious: Yes (Hospitalization, Disabling)
  Sender: FDA-Public Use
  Company Number: US-MERCK-0501USA03057

PATIENT
  Age: 51 Year
  Sex: Male
  Weight: 102 kg

DRUGS (3)
  1. VIOXX [Suspect]
     Indication: BACK PAIN
     Route: 048
     Dates: start: 20000101, end: 20040101
  2. VIOXX [Suspect]
     Indication: SHOULDER PAIN
     Route: 048
     Dates: start: 20000101, end: 20040101
  3. CELEBREX [Suspect]
     Route: 048

REACTIONS (15)
  - ACCIDENT [None]
  - BACK DISORDER [None]
  - CARPAL TUNNEL SYNDROME [None]
  - CORONARY ARTERY DISEASE [None]
  - ERUCTATION [None]
  - HYPERTENSION [None]
  - HYPOAESTHESIA [None]
  - IMPINGEMENT SYNDROME [None]
  - MUSCULOSKELETAL DISCOMFORT [None]
  - MYOCARDIAL INFARCTION [None]
  - PAIN IN EXTREMITY [None]
  - PATELLOFEMORAL PAIN SYNDROME [None]
  - ROAD TRAFFIC ACCIDENT [None]
  - SCIATICA [None]
  - SPONDYLOLISTHESIS [None]
